FAERS Safety Report 7375863-0 (Version None)
Quarter: 2011Q1

REPORT INFORMATION
  Report Type: 
  Country: None (occurrence: None)
  Receive Date: 20110325
  Receipt Date: 20110323
  Transmission Date: 20110831
  Serious: Yes (Hospitalization)
  Sender: FDA-Public Use
  Company Number: A0919564A

PATIENT
  Age: 15 Year
  Sex: Female

DRUGS (6)
  1. VELTIN [Suspect]
     Route: 061
     Dates: start: 20110208
  2. DUAC [Suspect]
     Route: 061
     Dates: start: 20110208
  3. SYNTHROID [Concomitant]
  4. LOESTRIN FE 1/20 [Concomitant]
  5. MINOCYCLINE HCL [Concomitant]
     Route: 048
  6. METHIMAZOLE [Concomitant]

REACTIONS (3)
  - HEADACHE [None]
  - DIPLOPIA [None]
  - BENIGN INTRACRANIAL HYPERTENSION [None]
